FAERS Safety Report 14393977 (Version 1)
Quarter: 2018Q1

REPORT INFORMATION
  Report Type: Spontaneous
  Country: GB (occurrence: GB)
  Receive Date: 20180116
  Receipt Date: 20180116
  Transmission Date: 20180509
  Serious: Yes (Hospitalization)
  Sender: FDA-Public Use
  Company Number: GB-TEVA-2018-GB-844942

PATIENT
  Age: 44 Year
  Sex: Male

DRUGS (12)
  1. MORPHINE SULFATE. [Concomitant]
     Active Substance: MORPHINE SULFATE
     Route: 048
  2. FRAGMIN [Concomitant]
     Active Substance: DALTEPARIN SODIUM
     Indication: PORTAL VEIN THROMBOSIS
     Dosage: 15000 IU (INTERNATIONAL UNIT) DAILY; STOPPED THREE DAYS PREVIOUSLY
     Dates: start: 20170706
  3. LANSOPRAZOLE. [Suspect]
     Active Substance: LANSOPRAZOLE
     Dosage: 30 MILLIGRAM DAILY;
     Route: 065
  4. SPIRONOLACTONE. [Concomitant]
     Active Substance: SPIRONOLACTONE
     Dosage: 200 MILLIGRAM DAILY; MORNING AND LUNCH
  5. ZOMORPH [Concomitant]
     Active Substance: MORPHINE SULFATE
     Dosage: STOPPED PRIOR TO ADMISSION
     Route: 048
  6. MYCOPHENOLATE MOFETIL. [Concomitant]
     Active Substance: MYCOPHENOLATE MOFETIL
     Dosage: 2000 MILLIGRAM DAILY;
     Dates: start: 20170713
  7. DOCUSATE [Concomitant]
     Active Substance: DOCUSATE
     Dosage: 400 MILLIGRAM DAILY;
  8. DALTEPARIN SODIUM [Concomitant]
     Active Substance: DALTEPARIN SODIUM
     Dosage: 15,000UNITS/0.6ML
  9. PREDNISOLONE. [Concomitant]
     Active Substance: PREDNISOLONE
     Dosage: 100 MILLIGRAM DAILY;
  10. PREGABALIN. [Concomitant]
     Active Substance: PREGABALIN
     Dosage: 100 MILLIGRAM DAILY;
  11. MST CONTINUS [Concomitant]
     Active Substance: MORPHINE SULFATE
     Route: 048
  12. CYCLIZINE [Concomitant]
     Active Substance: CYCLIZINE
     Dosage: 150 MILLIGRAM DAILY; UP TO 3 TIMES A DAY

REACTIONS (2)
  - Hyperkalaemia [Unknown]
  - Hyponatraemia [Recovered/Resolved]
